FAERS Safety Report 4890409-4 (Version None)
Quarter: 2005Q4

REPORT INFORMATION
  Report Type: 
  Country: None (occurrence: None)
  Receive Date: 20051216
  Receipt Date: 20051006
  Transmission Date: 20060501
  Serious: No
  Sender: FDA-Public Use
  Company Number: BDI-007638

PATIENT
  Age: 54 Year
  Sex: Male

DRUGS (1)
  1. MULTIHANCE [Suspect]
     Indication: ANGIOGRAM
     Dosage: 40 ML ONCE IV
     Route: 042
     Dates: start: 20051002, end: 20051002

REACTIONS (1)
  - VOMITING PROJECTILE [None]
